FAERS Safety Report 13390144 (Version 4)
Quarter: 2018Q1

REPORT INFORMATION
  Report Type: Spontaneous
  Country: US (occurrence: US)
  Receive Date: 20170331
  Receipt Date: 20180129
  Transmission Date: 20180508
  Serious: No
  Sender: FDA-Public Use
  Company Number: US-TEVA-749574ACC

PATIENT
  Age: 61 Year
  Sex: Female

DRUGS (16)
  1. VITAMIN B COMPLEX [Concomitant]
     Active Substance: CYANOCOBALAMIN\DEXPANTHENOL\NIACINAMIDE\PYRIDOXINE HYDROCHLORIDE\RIBOFLAVIN 5^-PHOSPHATE SODIUM\THIAMINE HYDROCHLORIDE\VITAMIN B COMPLEX
     Route: 065
  2. VESICARE [Concomitant]
     Active Substance: SOLIFENACIN SUCCINATE
     Route: 065
  3. CALCIUM +D [Concomitant]
     Active Substance: CALCIUM\VITAMIN D
     Route: 065
  4. VITAMIN D [Concomitant]
     Active Substance: CHOLECALCIFEROL
     Route: 065
  5. OMEPRAZOLE. [Concomitant]
     Active Substance: OMEPRAZOLE
  6. COPAXONE [Suspect]
     Active Substance: GLATIRAMER ACETATE
     Indication: MULTIPLE SCLEROSIS
     Dosage: FORMULATION: PREFILLED SYRINGE
     Route: 058
     Dates: start: 20161116
  7. BOTOX [Concomitant]
     Active Substance: ONABOTULINUMTOXINA
     Route: 065
  8. FLUTICASONE SPR [Concomitant]
     Route: 065
  9. AMPYRA [Concomitant]
     Active Substance: DALFAMPRIDINE
     Route: 065
  10. ARTHROTEC [Concomitant]
     Active Substance: DICLOFENAC SODIUM\MISOPROSTOL
     Route: 065
  11. MOBIC [Concomitant]
     Active Substance: MELOXICAM
     Route: 065
  12. QUINAPRIL. [Concomitant]
     Active Substance: QUINAPRIL
     Route: 065
  13. CALCIUM +D [Concomitant]
     Active Substance: CALCIUM\VITAMIN D
     Route: 065
  14. ELAVIL [Concomitant]
     Active Substance: AMITRIPTYLINE HYDROCHLORIDE
     Route: 065
  15. AMITRIPTYLIN POW [Concomitant]
  16. VITAMIN D3 [Concomitant]
     Active Substance: CHOLECALCIFEROL

REACTIONS (9)
  - Motor dysfunction [Not Recovered/Not Resolved]
  - Walking aid user [Not Recovered/Not Resolved]
  - Insomnia [Not Recovered/Not Resolved]
  - Wheelchair user [Not Recovered/Not Resolved]
  - Gait disturbance [Not Recovered/Not Resolved]
  - Muscular weakness [Unknown]
  - Dysgraphia [Not Recovered/Not Resolved]
  - Injection site atrophy [Not Recovered/Not Resolved]
  - Urinary incontinence [Not Recovered/Not Resolved]

NARRATIVE: CASE EVENT DATE: 201611
